FAERS Safety Report 6480346-6 (Version None)
Quarter: 2009Q4

REPORT INFORMATION
  Report Type: 
  Country: None (occurrence: None)
  Receive Date: 20091202
  Receipt Date: 20091120
  Transmission Date: 20100525
  Serious: Yes (Other)
  Sender: FDA-Public Use
  Company Number: 233380J09USA

PATIENT
  Age: 63 Year
  Sex: Female
  Weight: 109 kg

DRUGS (4)
  1. REBIF [Suspect]
     Indication: MULTIPLE SCLEROSIS
     Dosage: 22 MCG, 3 IN 1 WEEKS, SUBCUTANEOUS
     Route: 058
     Dates: start: 20090901
  2. TYLENOL [Concomitant]
  3. LEVOTHYROXINE (LEVOTHYROXINE /00068001/) [Concomitant]
  4. BYSTOLIC [Concomitant]

REACTIONS (1)
  - BREAST CANCER RECURRENT [None]
